FAERS Safety Report 13322234 (Version 1)
Quarter: 2017Q1

REPORT INFORMATION
  Report Type: Other
  Country: TR (occurrence: TR)
  Receive Date: 20170310
  Receipt Date: 20170310
  Transmission Date: 20170428
  Serious: Yes (Hospitalization, Other)
  Sender: FDA-Public Use
  Company Number: TR-AKORN-51587

PATIENT
  Age: 20 Year
  Sex: Female

DRUGS (1)
  1. CIPROFLOXACIN TABLET [Suspect]
     Active Substance: CIPROFLOXACIN

REACTIONS (14)
  - Hospitalisation [Recovered/Resolved]
  - Drug reaction with eosinophilia and systemic symptoms [None]
  - Toxic epidermal necrolysis [None]
  - Erythema [Recovered/Resolved]
  - Pyrexia [Recovered/Resolved]
  - Sinus tachycardia [Recovered/Resolved]
  - Cough [Recovered/Resolved]
  - Blister [Recovered/Resolved]
  - Blood pressure abnormal [Recovered/Resolved]
  - Heart rate increased [Recovered/Resolved]
  - Lymphadenopathy [Recovered/Resolved]
  - Lymphocyte morphology abnormal [Recovered/Resolved]
  - Confusional state [Recovered/Resolved]
  - Eosinophilia [Recovered/Resolved]
